FAERS Safety Report 8440728-X (Version None)
Quarter: 2012Q2

REPORT INFORMATION
  Report Type: 
  Country: None (occurrence: None)
  Receive Date: 20120615
  Receipt Date: 20120611
  Transmission Date: 20120825
  Serious: No
  Sender: FDA-Public Use
  Company Number: US-PFIZER INC-2012140408

PATIENT
  Sex: Male
  Weight: 81.633 kg

DRUGS (3)
  1. LATANOPROST [Suspect]
     Indication: GLAUCOMA
     Dosage: 1 GTT, DAILY
     Route: 047
     Dates: start: 20120420, end: 20120604
  2. LATANOPROST [Suspect]
     Dosage: 1 GTT, DAILY
     Route: 047
     Dates: start: 20120609
  3. METOPROLOL [Concomitant]
     Indication: HEART RATE IRREGULAR
     Dosage: 25 MG, 2X/DAY

REACTIONS (1)
  - EYE ALLERGY [None]
